FAERS Safety Report 22099619 (Version 9)
Quarter: 2024Q3

REPORT INFORMATION
  Report Type: Report from Study
  Country: DE (occurrence: DE)
  Receive Date: 20230315
  Receipt Date: 20240812
  Transmission Date: 20241017
  Serious: Yes (Hospitalization, Other)
  Sender: MYLAN
  Company Number: DE-ROCHE-2633079

PATIENT
  Age: 51 Year
  Sex: Female

DRUGS (17)
  1. PREGABALIN [Suspect]
     Active Substance: PREGABALIN
     Indication: Product used for unknown indication
     Dosage: 50 MILLIGRAM, BID (50 MG, 2-0-2, 2X/DAY)
     Route: 065
  2. PREGABALIN [Suspect]
     Active Substance: PREGABALIN
     Dosage: 25 MILLIGRAM
     Route: 065
  3. OCREVUS [Suspect]
     Active Substance: OCRELIZUMAB
     Indication: Secondary progressive multiple sclerosis
     Dosage: 600 MILLIGRAM
     Route: 042
  4. OCREVUS [Suspect]
     Active Substance: OCRELIZUMAB
     Indication: Relapsing-remitting multiple sclerosis
     Dosage: 600 MILLIGRAM, EVERY 158 DAYS
     Route: 042
     Dates: start: 20180201
  5. OCREVUS [Suspect]
     Active Substance: OCRELIZUMAB
     Dosage: 600 MILLIGRAM
     Route: 042
     Dates: start: 2019
  6. OCREVUS [Suspect]
     Active Substance: OCRELIZUMAB
     Dosage: 600 MILLIGRAM, (MAINTENANCE DOSE)
     Route: 042
     Dates: start: 20200720
  7. OCREVUS [Suspect]
     Active Substance: OCRELIZUMAB
     Dosage: 600 MILLIGRAM, EVERY 192 DAYS
     Route: 042
     Dates: start: 20210128
  8. OCREVUS [Suspect]
     Active Substance: OCRELIZUMAB
     Dosage: 600 MILLIGRAM
     Route: 042
     Dates: start: 20210917
  9. COMIRNATY (TOZINAMERAN) [Suspect]
     Active Substance: TOZINAMERAN
     Indication: COVID-19 prophylaxis
     Dosage: FIRST VACCINATION
     Route: 030
     Dates: start: 20210603, end: 20210603
  10. COMIRNATY (TOZINAMERAN) [Suspect]
     Active Substance: TOZINAMERAN
     Indication: COVID-19 immunisation
     Dosage: SECOND VACCINATION (DOSE 2, SINGLE)
     Route: 030
     Dates: start: 20210729, end: 20210729
  11. VITAMIN B12 [Concomitant]
     Active Substance: CYANOCOBALAMIN
     Dosage: UNK
     Route: 065
  12. DIETARY SUPPLEMENT\HERBALS [Concomitant]
     Active Substance: DIETARY SUPPLEMENT\HERBALS
     Dosage: UNK
     Route: 065
  13. METAMIZOLE [Concomitant]
     Active Substance: METAMIZOLE
     Dosage: UNK
     Route: 065
  14. TIZANIDINE HYDROCHLORIDE [Concomitant]
     Active Substance: TIZANIDINE HYDROCHLORIDE
     Dosage: UNK
     Route: 065
  15. XYLOMETAZOLINE HYDROCHLORIDE [Concomitant]
     Active Substance: XYLOMETAZOLINE HYDROCHLORIDE
     Dosage: UNK
     Route: 065
  16. VITAMIN D3 [Concomitant]
     Active Substance: CHOLECALCIFEROL
     Indication: Hypocalcaemia
     Dosage: UNK
     Route: 065
  17. TIZANIDINE [Concomitant]
     Active Substance: TIZANIDINE
     Dosage: UNK
     Route: 065

REACTIONS (43)
  - Multiple sclerosis [Unknown]
  - Multiple sclerosis relapse [Not Recovered/Not Resolved]
  - Suicidal ideation [Recovered/Resolved]
  - Mental disorder [Recovering/Resolving]
  - Dizziness [Recovering/Resolving]
  - Deafness [Recovered/Resolved]
  - Shoulder fracture [Recovered/Resolved]
  - Fall [Unknown]
  - Oropharyngeal pain [Recovered/Resolved]
  - COVID-19 [Recovering/Resolving]
  - Pulmonary pain [Recovered/Resolved]
  - Tonsillitis [Recovered/Resolved]
  - Emotional disorder [Not Recovered/Not Resolved]
  - Alopecia [Recovered/Resolved]
  - Morton^s neuralgia [Unknown]
  - Muscular weakness [Recovered/Resolved]
  - Chest pain [Recovered/Resolved]
  - Genital tract inflammation [Recovered/Resolved]
  - Pruritus genital [Not Recovered/Not Resolved]
  - Illness [Recovered/Resolved]
  - White blood cell count increased [Recovered/Resolved]
  - Paraesthesia ear [Recovered/Resolved]
  - Limb discomfort [Not Recovered/Not Resolved]
  - Eructation [Not Recovered/Not Resolved]
  - Genital burning sensation [Not Recovered/Not Resolved]
  - Gait disturbance [Not Recovered/Not Resolved]
  - Visual impairment [Not Recovered/Not Resolved]
  - Muscle spasticity [Not Recovered/Not Resolved]
  - Condition aggravated [Unknown]
  - Vitamin B12 increased [Not Recovered/Not Resolved]
  - Liver function test increased [Not Recovered/Not Resolved]
  - Nasal dryness [Not Recovered/Not Resolved]
  - Nasopharyngitis [Recovered/Resolved]
  - Fatigue [Recovered/Resolved]
  - Asthenia [Recovered/Resolved]
  - Cough [Recovered/Resolved]
  - Arthralgia [Recovered/Resolved]
  - Paraesthesia [Recovered/Resolved]
  - Panic attack [Recovered/Resolved]
  - Pain in extremity [Recovered/Resolved]
  - Lacrimation increased [Not Recovered/Not Resolved]
  - Inappropriate schedule of product administration [Unknown]
  - Weight decreased [Not Recovered/Not Resolved]

NARRATIVE: CASE EVENT DATE: 20180201
